FAERS Safety Report 5776026-2 (Version None)
Quarter: 2008Q2

REPORT INFORMATION
  Report Type: 
  Country: None (occurrence: None)
  Receive Date: 20080613
  Receipt Date: 20080602
  Transmission Date: 20081010
  Serious: Yes (Hospitalization, Other)
  Sender: FDA-Public Use
  Company Number: FABR-1000268

PATIENT
  Age: 33 Year
  Sex: Male
  Weight: 115 kg

DRUGS (7)
  1. FABRAZYME [Suspect]
     Indication: FABRY'S DISEASE
     Dosage: 105 MG, Q2W, INTRAVENOUS
     Route: 042
     Dates: start: 20051024
  2. ASPIRIN (SLICYLAMIDE) [Concomitant]
  3. DILANTIN [Concomitant]
  4. VALSARTAN [Concomitant]
  5. PHOSLO [Concomitant]
  6. FUROSEMIDE [Concomitant]
  7. CALCITRIOL [Concomitant]

REACTIONS (10)
  - CARDIAC FAILURE CONGESTIVE [None]
  - DISEASE PROGRESSION [None]
  - DYSPNOEA [None]
  - FABRY'S DISEASE [None]
  - HAEMODIALYSIS [None]
  - LYMPHOEDEMA [None]
  - PAIN [None]
  - PULMONARY OEDEMA [None]
  - RENAL IMPAIRMENT [None]
  - SLEEP APNOEA SYNDROME [None]
